FAERS Safety Report 13064944 (Version 1)
Quarter: 2016Q4

REPORT INFORMATION
  Report Type: Spontaneous
  Country: US (occurrence: US)
  Receive Date: 20161223
  Receipt Date: 20161223
  Transmission Date: 20170207
  Serious: No
  Sender: FDA-Public Use
  Company Number: None

PATIENT
  Age: 51 Year
  Sex: Female

DRUGS (1)
  1. COPAXONE [Suspect]
     Active Substance: GLATIRAMER ACETATE
     Indication: MULTIPLE SCLEROSIS
     Dosage: 40 MG/ML 3 TIMES WEEK SUBCUTANEOUSLY
     Route: 058
     Dates: start: 20160509, end: 20161123

REACTIONS (1)
  - Depressed level of consciousness [None]

NARRATIVE: CASE EVENT DATE: 20161123
